FAERS Safety Report 5448688-0 (Version None)
Quarter: 2007Q3

REPORT INFORMATION
  Report Type: 
  Country: None (occurrence: None)
  Receive Date: 20070911
  Receipt Date: 20070904
  Transmission Date: 20080115
  Serious: Yes (Other)
  Sender: FDA-Public Use
  Company Number: A0676155A

PATIENT
  Age: 42 Year
  Sex: Male

DRUGS (6)
  1. COREG CR [Suspect]
     Indication: DRUG USE FOR UNKNOWN INDICATION
     Dosage: 80MG TWICE PER DAY
     Route: 048
     Dates: start: 20070810, end: 20070820
  2. LIPITOR [Concomitant]
  3. PLAVIX [Concomitant]
  4. ZETIA [Concomitant]
  5. ASPIRIN [Concomitant]
  6. NORVASC [Concomitant]

REACTIONS (12)
  - ANOREXIA [None]
  - CHEST PAIN [None]
  - COLD SWEAT [None]
  - DIZZINESS [None]
  - DRUG DISPENSING ERROR [None]
  - DYSPNOEA [None]
  - FATIGUE [None]
  - FEELING ABNORMAL [None]
  - HEPATOCELLULAR DAMAGE [None]
  - HYPERHIDROSIS [None]
  - OVERDOSE [None]
  - PAIN [None]
